FAERS Safety Report 19062387 (Version 1)
Quarter: 2021Q1

REPORT INFORMATION
  Report Type: Spontaneous
  Country: US (occurrence: US)
  Receive Date: 20210325
  Receipt Date: 20210325
  Transmission Date: 20210420
  Serious: No
  Sender: FDA-Public Use
  Company Number: None

PATIENT
  Age: 53 Year
  Sex: Female
  Weight: 66.68 kg

DRUGS (1)
  1. ESTRADIOL PATCH 0.05MG [Suspect]
     Active Substance: ESTRADIOL
     Indication: MENOPAUSE
     Route: 062
     Dates: start: 20210219, end: 20210223

REACTIONS (5)
  - Application site rash [None]
  - Pruritus [None]
  - Headache [None]
  - Breast tenderness [None]
  - Nausea [None]
